FAERS Safety Report 9334771 (Version 1)
Quarter: 2013Q2

REPORT INFORMATION
  Report Type: Spontaneous
  Country: US (occurrence: US)
  Receive Date: 20130606
  Receipt Date: 20130606
  Transmission Date: 20140414
  Serious: No
  Sender: FDA-Public Use
  Company Number: US-AMGEN-USASP2013024665

PATIENT
  Age: 76 Year
  Sex: Female

DRUGS (9)
  1. PROLIA [Suspect]
     Indication: OSTEOPOROSIS
     Dosage: UNK
     Dates: start: 20130328
  2. LEVOXYL [Concomitant]
  3. CALCIUM [Concomitant]
  4. VITAMIN D                          /00107901/ [Concomitant]
  5. DIGOXIN [Concomitant]
  6. PAXIL                              /00500401/ [Concomitant]
  7. NORPACE [Concomitant]
  8. XANAX [Concomitant]
  9. PRESERVISION LUTEIN [Concomitant]

REACTIONS (3)
  - Headache [Unknown]
  - Myalgia [Unknown]
  - Bone pain [Unknown]
